FAERS Safety Report 5837282-5 (Version None)
Quarter: 2008Q3

REPORT INFORMATION
  Report Type: 
  Country: None (occurrence: None)
  Receive Date: 20080807
  Receipt Date: 20080729
  Transmission Date: 20090109
  Serious: Yes (Hospitalization)
  Sender: FDA-Public Use
  Company Number: US-ELI_LILLY_AND_COMPANY-US200806005233

PATIENT
  Sex: Male
  Weight: 90.703 kg

DRUGS (17)
  1. BYETTA [Suspect]
     Indication: TYPE 2 DIABETES MELLITUS
     Dosage: 10 UG, 2/D
     Route: 058
     Dates: start: 20050101
  2. METOPROLOL SUCCINATE [Concomitant]
     Dosage: 50 MG, 2/D
     Route: 048
     Dates: start: 20050101
  3. METOPROLOL SUCCINATE [Concomitant]
     Dosage: 25 MG, 2/D
     Route: 048
     Dates: start: 20071001
  4. TRICOR [Concomitant]
     Indication: BLOOD CHOLESTEROL
     Dosage: 145 MG, EACH EVENING
  5. ALLOPURINOL [Concomitant]
     Indication: NEPHROLITHIASIS
     Dosage: 300 MG, 2/D
  6. OTHER VITAMIN PRODUCTS, COMBINATIONS [Concomitant]
     Indication: LIMB DISCOMFORT
     Dosage: UNK, 2/D
  7. BIOTIN [Concomitant]
     Indication: NAIL DISORDER
     Dosage: 5000 MG, UNK
     Dates: start: 20070101
  8. ERGOCALCIFEROL [Concomitant]
     Dosage: 1000 U, 2/D
  9. CINNAMON [Concomitant]
     Indication: BLOOD GLUCOSE
     Dosage: 1000 MG, 2/D
     Dates: start: 20070101
  10. CENTRUM SILVER [Concomitant]
     Dosage: 1 UNK, DAILY (1/D)
  11. ASCORBIC ACID [Concomitant]
     Dosage: 500 MG, UNK
  12. NEXIUM [Concomitant]
     Indication: DIABETIC ULCER
     Dosage: 40 MG, EACH MORNING
  13. FLUTICASONE PROPIONATE [Concomitant]
     Indication: SINUS DISORDER
     Dosage: UNK, EACH EVENING
  14. BENADRYL [Concomitant]
     Dosage: UNK, EACH EVENING
  15. WARFARIN SODIUM [Concomitant]
     Dosage: 5 MG, 5/W
     Dates: start: 20080201
  16. WARFARIN SODIUM [Concomitant]
     Dosage: 2.5 MG, 2/W
  17. WARFARIN SODIUM [Concomitant]
     Dosage: 5 MG, 5/W

REACTIONS (16)
  - APPLICATION SITE PAIN [None]
  - ARTHROSCOPIC SURGERY [None]
  - BLOOD GLUCOSE DECREASED [None]
  - BLOOD GLUCOSE INCREASED [None]
  - BLOOD TEST ABNORMAL [None]
  - CATARACT OPERATION [None]
  - EPIDURAL ANAESTHESIA [None]
  - EYE OPERATION [None]
  - FEELING ABNORMAL [None]
  - HEART RATE IRREGULAR [None]
  - HUNGER [None]
  - HYPOACUSIS [None]
  - INCREASED UPPER AIRWAY SECRETION [None]
  - MOBILITY DECREASED [None]
  - VITAMIN D DECREASED [None]
  - WEIGHT DECREASED [None]
